FAERS Safety Report 9432059 (Version 3)
Quarter: 2013Q4

REPORT INFORMATION
  Report Type: Spontaneous
  Country: FR (occurrence: None)
  Receive Date: 20130726
  Receipt Date: 20131009
  Transmission Date: 20140711
  Serious: Yes (Life-Threatening, Other)
  Sender: FDA-Public Use
  Company Number: 2013FR001957

PATIENT
  Age: 55 Year
  Sex: Male
  Weight: 95 kg

DRUGS (6)
  1. PONATINIB (AP24534) TABLET [Suspect]
     Indication: CHRONIC MYELOID LEUKAEMIA
     Route: 048
     Dates: start: 20130610, end: 20130610
  2. ARCOXIA (ETORICOXIB) [Concomitant]
  3. PARACETAMOL (CAFFEINE, CODEINE PHOSPHATE) [Concomitant]
  4. SYMBICORT 400 (BUDESONIDE, FOROTEROL FUMARATE) [Concomitant]
  5. HYDROXYUREA (HYDROXYUREA) [Concomitant]
  6. PARACETAMOL (PARACETAMOL) [Concomitant]

REACTIONS (7)
  - Thrombocytopenia [None]
  - Gastrointestinal haemorrhage [None]
  - Diarrhoea [None]
  - Acute respiratory distress syndrome [None]
  - Cerebral infarction [None]
  - Back pain [None]
  - Myalgia [None]
